FAERS Safety Report 22859338 (Version 2)
Quarter: 2024Q1

REPORT INFORMATION
  Report Type: Spontaneous
  Country: US (occurrence: US)
  Receive Date: 20230824
  Receipt Date: 20240124
  Transmission Date: 20240410
  Serious: No
  Sender: FDA-Public Use
  Company Number: US-OPELLA-2023OHG002244

PATIENT
  Age: 66 Year
  Sex: Female

DRUGS (15)
  1. DIPHENHYDRAMINE [Suspect]
     Active Substance: DIPHENHYDRAMINE
     Indication: Pruritus
  2. METHYLPREDNISOLONE [Concomitant]
     Active Substance: METHYLPREDNISOLONE
  3. acetaminophen 1000 mg [Concomitant]
  4. DEXAMETHASONE [Concomitant]
     Active Substance: DEXAMETHASONE
  5. hydromorphone 2 mg [Concomitant]
  6. ONDANSETRON [Concomitant]
     Active Substance: ONDANSETRON
  7. vecuronium 15 mg [Concomitant]
  8. propofol 160 mg [Concomitant]
  9. KETOROLAC [Concomitant]
     Active Substance: KETOROLAC TROMETHAMINE
  10. vancomycin 1 g [Concomitant]
  11. EPINEPHRINE [Concomitant]
     Active Substance: EPINEPHRINE
  12. ALBUTEROL [Concomitant]
     Active Substance: ALBUTEROL
  13. LORAZEPAM [Concomitant]
     Active Substance: LORAZEPAM
  14. LIDOCAINE [Concomitant]
     Active Substance: LIDOCAINE
  15. FENTANYL [Concomitant]
     Active Substance: FENTANYL\FENTANYL CITRATE

REACTIONS (2)
  - Off label use [Unknown]
  - No adverse event [Unknown]
